FAERS Safety Report 7913406-0 (Version None)
Quarter: 2011Q4

REPORT INFORMATION
  Report Type: 
  Country: None (occurrence: None)
  Receive Date: 20111115
  Receipt Date: 20111107
  Transmission Date: 20120403
  Serious: Yes (Hospitalization)
  Sender: FDA-Public Use
  Company Number: US-BIOGENIDEC-2011BI026581

PATIENT
  Sex: Female

DRUGS (3)
  1. AVONEX [Suspect]
     Route: 030
     Dates: start: 19981201, end: 19990701
  2. AVONEX [Suspect]
     Route: 030
     Dates: start: 20030801, end: 20050222
  3. AVONEX [Suspect]
     Indication: MULTIPLE SCLEROSIS
     Route: 030
     Dates: start: 20060714

REACTIONS (15)
  - GASTROINTESTINAL STOMA COMPLICATION [None]
  - GALLBLADDER DISORDER [None]
  - POSTOPERATIVE WOUND COMPLICATION [None]
  - MULTIPLE SCLEROSIS RELAPSE [None]
  - INTESTINAL ANASTOMOSIS COMPLICATION [None]
  - PAIN [None]
  - DIARRHOEA [None]
  - LARGE INTESTINE PERFORATION [None]
  - INTESTINAL PROLAPSE [None]
  - SCAR [None]
  - ASTHENIA [None]
  - INCISION SITE ABSCESS [None]
  - DEPRESSION [None]
  - ANXIETY [None]
  - DIVERTICULITIS [None]
